FAERS Safety Report 9868720 (Version 1)
Quarter: 2014Q1

REPORT INFORMATION
  Report Type: Spontaneous
  Country: US (occurrence: US)
  Receive Date: 20140204
  Receipt Date: 20140204
  Transmission Date: 20141002
  Serious: No
  Sender: FDA-Public Use
  Company Number: US-ENDO PHARMACEUTICALS INC.-METH20130007

PATIENT
  Age: 85 Year
  Sex: Female
  Weight: 61.29 kg

DRUGS (1)
  1. METHYLPREDNISOLONE [Suspect]
     Indication: VARICELLA
     Dosage: 4 MG DOSE PACK
     Route: 048
     Dates: start: 20130320, end: 20130325

REACTIONS (3)
  - Decreased appetite [Not Recovered/Not Resolved]
  - Dyspepsia [Not Recovered/Not Resolved]
  - Drug ineffective [Recovered/Resolved]
